FAERS Safety Report 10595470 (Version 1)
Quarter: 2014Q4

REPORT INFORMATION
  Report Type: Spontaneous
  Country: BR (occurrence: None)
  Receive Date: 20141118
  Receipt Date: 20141118
  Transmission Date: 20150529
  Serious: Yes (Other)
  Sender: FDA-Public Use
  Company Number: 2014SA119811

PATIENT
  Age: 45 Year
  Sex: Female

DRUGS (1)
  1. TAXOTERE [Suspect]
     Active Substance: DOCETAXEL
     Dosage: 138.97 MILLIGRAM(S); DAILY; INTRAVENOUS (NOT OTHERWISE SPECIFIED)?
     Route: 042
     Dates: start: 20140521

REACTIONS (2)
  - Dyspnoea [None]
  - Heart rate decreased [None]

NARRATIVE: CASE EVENT DATE: 20140521
